FAERS Safety Report 16796158 (Version 1)
Quarter: 2019Q3

REPORT INFORMATION
  Report Type: Spontaneous
  Country: US (occurrence: US)
  Receive Date: 20190911
  Receipt Date: 20190911
  Transmission Date: 20191005
  Serious: No
  Sender: FDA-Public Use
  Company Number: US-AMNEAL PHARMACEUTICALS-2018-IPXL-03605

PATIENT
  Age: 66 Year
  Sex: Female
  Weight: 100 kg

DRUGS (4)
  1. BUDESONIDE. [Suspect]
     Active Substance: BUDESONIDE
     Dosage: ONE AMPULE, TWICE A DAY
     Dates: start: 201611
  2. BUDESONIDE. [Suspect]
     Active Substance: BUDESONIDE
     Dosage: ONE AMPULE, TWICE A DAY
     Dates: start: 201611
  3. BUDESONIDE. [Suspect]
     Active Substance: BUDESONIDE
     Indication: CHRONIC OBSTRUCTIVE PULMONARY DISEASE
     Dosage: ONE AMPULE, TWICE A DAY
     Dates: start: 201611
  4. BUDESONIDE. [Suspect]
     Active Substance: BUDESONIDE
     Dosage: UNK; DOSE INCREASED

REACTIONS (4)
  - Dyspnoea [Recovered/Resolved]
  - Product quality issue [Unknown]
  - Product complaint [Unknown]
  - Product use in unapproved indication [Unknown]

NARRATIVE: CASE EVENT DATE: 201611
